FAERS Safety Report 6273096-2 (Version None)
Quarter: 2009Q3

REPORT INFORMATION
  Report Type: 
  Country: None (occurrence: None)
  Receive Date: 20090715
  Receipt Date: 20090715
  Transmission Date: 20100115
  Serious: No
  Sender: FDA-Public Use
  Company Number: None

PATIENT
  Age: 38 Year
  Sex: Female

DRUGS (5)
  1. HYDROXYZINE HCL [Suspect]
  2. PROPRANOLOL [Concomitant]
  3. CARBAMAZEPINE [Concomitant]
  4. MEPROBAMATE [Concomitant]
  5. HYDROXYZINE [Concomitant]

REACTIONS (3)
  - DRUG TOXICITY [None]
  - INTESTINAL INFARCTION [None]
  - INTESTINAL ISCHAEMIA [None]
